FAERS Safety Report 7884179-5 (Version None)
Quarter: 2011Q4

REPORT INFORMATION
  Report Type: 
  Country: None (occurrence: None)
  Receive Date: 20111102
  Receipt Date: 20111026
  Transmission Date: 20120403
  Serious: Yes (Death, Hospitalization)
  Sender: FDA-Public Use
  Company Number: FR-GLAXOSMITHKLINE-B0758471A

PATIENT
  Age: 85 Year
  Sex: Male

DRUGS (1)
  1. ARIXTRA [Suspect]
     Indication: THROMBOSIS PROPHYLAXIS
     Dates: end: 20111001

REACTIONS (2)
  - ABDOMINAL PAIN [None]
  - INTRA-ABDOMINAL HAEMATOMA [None]
